FAERS Safety Report 4750182-7 (Version None)
Quarter: 2005Q3

REPORT INFORMATION
  Report Type: 
  Country: None (occurrence: None)
  Receive Date: 20050823
  Receipt Date: 20050812
  Transmission Date: 20060218
  Serious: Yes (Death, Congenital Anomaly, Other)
  Sender: FDA-Public Use
  Company Number: US-JNJFOC-20050606991

PATIENT

DRUGS (4)
  1. REMICADE [Suspect]
  2. REMICADE [Suspect]
     Indication: CROHN'S DISEASE
  3. PENTASA [Concomitant]
  4. IMURAN [Concomitant]

REACTIONS (5)
  - CAESAREAN SECTION [None]
  - DRUG EXPOSURE DURING PREGNANCY [None]
  - FOETAL DISORDER [None]
  - SKELETON DYSPLASIA [None]
  - SPINAL DISORDER [None]
